FAERS Safety Report 13247984 (Version 4)
Quarter: 2017Q2

REPORT INFORMATION
  Report Type: Report from Study
  Country: None (occurrence: NL)
  Receive Date: 20170217
  Receipt Date: 20170413
  Transmission Date: 20170830
  Serious: Yes (Death, Hospitalization)
  Sender: FDA-Public Use
  Company Number: NL-ABBVIE-17P-114-1877878-00

PATIENT
  Age: 78 Year
  Sex: Male
  Weight: 78 kg

DRUGS (1)
  1. DUODOPA [Suspect]
     Active Substance: CARBIDOPA\LEVODOPA
     Indication: PARKINSON^S DISEASE
     Dosage: MORNING DOSE: 3.0; CONTINUOUS DOSE: 4.5; EXTRA DOSE: 1.0   CND: 4.1
     Route: 050
     Dates: start: 20090708

REACTIONS (14)
  - Fall [Recovered/Resolved]
  - Fluid intake reduced [Not Recovered/Not Resolved]
  - Infection [Not Recovered/Not Resolved]
  - Mobility decreased [Not Recovered/Not Resolved]
  - Delirium [Fatal]
  - Pulmonary embolism [Fatal]
  - Hypophagia [Not Recovered/Not Resolved]
  - Systemic infection [Fatal]
  - Parkinson^s disease [Fatal]
  - Pyrexia [Fatal]
  - Pulmonary embolism [Not Recovered/Not Resolved]
  - Weight decreased [Not Recovered/Not Resolved]
  - Malaise [Not Recovered/Not Resolved]
  - Encephalitis [Fatal]

NARRATIVE: CASE EVENT DATE: 2017
